FAERS Safety Report 16133089 (Version 1)
Quarter: 2019Q1

REPORT INFORMATION
  Report Type: Spontaneous
  Country: ES (occurrence: ES)
  Receive Date: 20190329
  Receipt Date: 20190329
  Transmission Date: 20190418
  Serious: Yes (Other)
  Sender: FDA-Public Use
  Company Number: PHHY2019ES064952

PATIENT
  Age: 31 Year
  Sex: Male

DRUGS (3)
  1. CISPLATIN. [Concomitant]
     Active Substance: CISPLATIN
     Indication: NEUROBLASTOMA
     Dosage: 3 CYCLES
     Route: 065
  2. ETOPOSIDE. [Concomitant]
     Active Substance: ETOPOSIDE
     Indication: NEUROBLASTOMA
     Dosage: 3 CYCLES
     Route: 065
  3. KETOCONAZOLE. [Suspect]
     Active Substance: KETOCONAZOLE
     Indication: HYPERCORTICOIDISM
     Dosage: 800 MG, QD
     Route: 065

REACTIONS (2)
  - Hepatotoxicity [Unknown]
  - Product use in unapproved indication [Unknown]
